FAERS Safety Report 10553220 (Version 3)
Quarter: 2017Q1

REPORT INFORMATION
  Report Type: Report from Study
  Country: PT (occurrence: PT)
  Receive Date: 20141030
  Receipt Date: 20170220
  Transmission Date: 20170428
  Serious: Yes (Other)
  Sender: FDA-Public Use
  Company Number: PT-ROCHE-1480105

PATIENT

DRUGS (3)
  1. METHYLPREDNISOLONE. [Suspect]
     Active Substance: METHYLPREDNISOLONE
     Indication: SYSTEMIC LUPUS ERYTHEMATOSUS
     Dosage: 100-250 MG
     Route: 065
  2. CYCLOPHOSPHAMIDE. [Suspect]
     Active Substance: CYCLOPHOSPHAMIDE
     Indication: SYSTEMIC LUPUS ERYTHEMATOSUS
     Route: 042
  3. RITUXIMAB [Suspect]
     Active Substance: RITUXIMAB
     Indication: SYSTEMIC LUPUS ERYTHEMATOSUS
     Dosage: 2 INFUSIONS 2 WEEKS APART
     Route: 042

REACTIONS (15)
  - Septic shock [Unknown]
  - Off label use [Unknown]
  - Arterial insufficiency [Unknown]
  - Infection [Unknown]
  - Hypogammaglobulinaemia [Unknown]
  - Soft tissue infection [Unknown]
  - Cerebrovascular accident [Unknown]
  - Myocardial infarction [Unknown]
  - Hypersensitivity [Unknown]
  - Cystitis [Unknown]
  - Gastroenteritis [Unknown]
  - Peripheral arterial occlusive disease [Unknown]
  - Infusion related reaction [Unknown]
  - Product use issue [Unknown]
  - Hepatitis B [Unknown]
